FAERS Safety Report 8689397 (Version 6)
Quarter: 2013Q2

REPORT INFORMATION
  Report Type: Spontaneous
  Country: US (occurrence: US)
  Receive Date: 20120727
  Receipt Date: 20130521
  Transmission Date: 20140414
  Serious: No
  Sender: FDA-Public Use
  Company Number: US-ASTRAZENECA-2012SE01793

PATIENT
  Age: 62 Year
  Sex: Female
  Weight: 61.2 kg

DRUGS (12)
  1. SEROQUEL [Suspect]
     Indication: BIPOLAR DISORDER
     Route: 048
  2. SEROQUEL [Suspect]
     Indication: DEPRESSION
     Route: 048
  3. SEROQUEL [Suspect]
     Indication: BIPOLAR DISORDER
     Route: 048
     Dates: start: 201302, end: 201302
  4. SEROQUEL [Suspect]
     Indication: DEPRESSION
     Route: 048
     Dates: start: 201302, end: 201302
  5. SEROQUEL [Suspect]
     Indication: BIPOLAR DISORDER
     Route: 048
     Dates: start: 201302
  6. SEROQUEL [Suspect]
     Indication: DEPRESSION
     Route: 048
     Dates: start: 201302
  7. SEROQUEL [Suspect]
     Indication: BIPOLAR DISORDER
     Route: 048
     Dates: start: 201302
  8. SEROQUEL [Suspect]
     Indication: DEPRESSION
     Route: 048
     Dates: start: 201302
  9. EFFEXOR [Concomitant]
     Indication: DEPRESSION
     Route: 048
  10. EFFEXOR [Concomitant]
     Indication: DEPRESSION
     Route: 048
  11. LAMICTAL [Concomitant]
     Indication: DEPRESSION
     Route: 048
  12. TOPOMAX [Concomitant]
     Indication: DEPRESSION
     Route: 048

REACTIONS (22)
  - Confusional state [Unknown]
  - Dyslexia [Unknown]
  - Exostosis [Unknown]
  - Mental disorder [Unknown]
  - Stress [Unknown]
  - Abnormal loss of weight [Unknown]
  - Insomnia [Unknown]
  - Hyperhidrosis [Unknown]
  - Chills [Unknown]
  - Hot flush [Unknown]
  - Aphagia [Unknown]
  - Nausea [Unknown]
  - Rhinorrhoea [Unknown]
  - Rhinorrhoea [Unknown]
  - Malaise [Unknown]
  - Reading disorder [Unknown]
  - Dysgraphia [Unknown]
  - Depression [Unknown]
  - Withdrawal syndrome [Unknown]
  - Feeling abnormal [Unknown]
  - Intentional drug misuse [Unknown]
  - Drug dose omission [Unknown]
